FAERS Safety Report 13710913 (Version 1)
Quarter: 2017Q2

REPORT INFORMATION
  Report Type: Spontaneous
  Country: US (occurrence: US)
  Receive Date: 20170630
  Receipt Date: 20170630
  Transmission Date: 20170830
  Serious: Yes (Other)
  Sender: FDA-Public Use
  Company Number: None

PATIENT
  Age: 10 Year
  Sex: Male

DRUGS (1)
  1. REVLIMID [Suspect]
     Active Substance: LENALIDOMIDE
     Indication: APHTHOUS ULCER
     Route: 048
     Dates: start: 20170630

REACTIONS (1)
  - Off label use [None]

NARRATIVE: CASE EVENT DATE: 20170629
